FAERS Safety Report 8666997 (Version 5)
Quarter: 2013Q2

REPORT INFORMATION
  Report Type: Report from Study
  Country: ES (occurrence: ES)
  Receive Date: 20120716
  Receipt Date: 20130516
  Transmission Date: 20140414
  Serious: Yes (Other)
  Sender: FDA-Public Use
  Company Number: ES-ROCHE-1059010

PATIENT
  Age: 42 Year
  Sex: Female
  Weight: 48 kg

DRUGS (2)
  1. VEMURAFENIB [Suspect]
     Indication: MALIGNANT MELANOMA
     Dosage: LAST DOSE PRIOR TO THE EVENT 08 MAR 2012.
     Route: 048
     Dates: start: 20110530
  2. VEMURAFENIB [Suspect]
     Dosage: LAST DOSE PRIOR TO THE EVENT 08 MAR 2012.
     Route: 048
     Dates: start: 20110825

REACTIONS (1)
  - Macular oedema [Not Recovered/Not Resolved]
